FAERS Safety Report 7183354-5 (Version None)
Quarter: 2010Q4

REPORT INFORMATION
  Report Type: 
  Country: None (occurrence: None)
  Receive Date: 20101222
  Receipt Date: 20100913
  Transmission Date: 20110411
  Serious: No
  Sender: FDA-Public Use
  Company Number: US-MYLANLABS-2010S1016807

PATIENT
  Age: 68 Year
  Sex: Female
  Weight: 62.6 kg

DRUGS (4)
  1. HYDROXYZINE HYDROCHLORIDE [Suspect]
     Indication: SKIN DISORDER
     Route: 048
     Dates: start: 20100909, end: 20100909
  2. AMBIEN [Concomitant]
     Indication: INSOMNIA
  3. ASPIRIN [Concomitant]
     Indication: CEREBROVASCULAR ACCIDENT
  4. CALCIUM [Concomitant]

REACTIONS (2)
  - SWELLING FACE [None]
  - URTICARIA [None]
